FAERS Safety Report 5493243-X (Version None)
Quarter: 2007Q4

REPORT INFORMATION
  Report Type: 
  Country: None (occurrence: None)
  Receive Date: 20071023
  Receipt Date: 20071010
  Transmission Date: 20080405
  Serious: Yes (Hospitalization)
  Sender: FDA-Public Use
  Company Number: GB-AMGEN-US248124

PATIENT
  Sex: Female

DRUGS (4)
  1. ENBREL [Suspect]
     Indication: RHEUMATOID ARTHRITIS
     Dosage: 50 MG PRE-FILLED SYRINGE ONCE WEEKLY
  2. ENBREL [Suspect]
     Dosage: 50 MG LYPHOLISED ONCE WEEKLY
     Dates: start: 20070101
  3. ETORICOXIB [Concomitant]
     Dosage: UNKNOWN
  4. METHOTREXATE [Concomitant]
     Dosage: UNKNOWN

REACTIONS (1)
  - SUBARACHNOID HAEMORRHAGE [None]
